FAERS Safety Report 4747677-9 (Version None)
Quarter: 2005Q3

REPORT INFORMATION
  Report Type: 
  Country: None (occurrence: None)
  Receive Date: 20050818
  Receipt Date: 20050620
  Transmission Date: 20060218
  Serious: No
  Sender: FDA-Public Use
  Company Number: US-BRISTOL-MYERS SQUIBB COMPANY-13009725

PATIENT
  Sex: Female

DRUGS (3)
  1. TEQUIN [Suspect]
     Indication: NASOPHARYNGITIS
  2. CALCIUM GLUCONATE [Concomitant]
  3. ACTONEL [Concomitant]

REACTIONS (4)
  - DYSGEUSIA [None]
  - GLOSSODYNIA [None]
  - ORAL MUCOSAL BLISTERING [None]
  - TONGUE DISCOLOURATION [None]
